FAERS Safety Report 6970346-1 (Version None)
Quarter: 2010Q3

REPORT INFORMATION
  Report Type: 
  Country: None (occurrence: None)
  Receive Date: 20100908
  Receipt Date: 20100830
  Transmission Date: 20110219
  Serious: Yes (Hospitalization)
  Sender: FDA-Public Use
  Company Number: US-ASTRAZENECA-2010SE40742

PATIENT
  Sex: Female

DRUGS (1)
  1. NEXIUM [Suspect]
     Route: 048
     Dates: end: 20100827

REACTIONS (5)
  - AURICULAR SWELLING [None]
  - EYE SWELLING [None]
  - LIP SWELLING [None]
  - RASH [None]
  - SWELLING FACE [None]
